FAERS Safety Report 4441088-1 (Version None)
Quarter: 2004Q3

REPORT INFORMATION
  Report Type: 
  Country: None (occurrence: None)
  Receive Date: 20040902
  Receipt Date: 20040902
  Transmission Date: 20050211
  Serious: No
  Sender: FDA-Public Use
  Company Number: None

PATIENT
  Sex: Male
  Weight: 99.7913 kg

DRUGS (2)
  1. MS CONTIN [Suspect]
     Indication: REFLEX SYMPATHETIC DYSTROPHY
     Dosage: LIFE TIME
  2. MS CONTIN [Suspect]
     Indication: REFLEX SYMPATHETIC DYSTROPHY
     Dosage: LIFETIME

REACTIONS (3)
  - DRUG INEFFECTIVE [None]
  - PAIN EXACERBATED [None]
  - PHARMACEUTICAL PRODUCT COMPLAINT [None]
